FAERS Safety Report 17228310 (Version 1)
Quarter: 2020Q1

REPORT INFORMATION
  Report Type: Spontaneous
  Country: US (occurrence: US)
  Receive Date: 20200103
  Receipt Date: 20200103
  Transmission Date: 20200409
  Serious: No
  Sender: FDA-Public Use
  Company Number: US-GLAXOSMITHKLINE-US2019237877

PATIENT
  Age: 90 Year
  Sex: Female

DRUGS (1)
  1. LAMISIL AT CONTINUOUS SPRAY [Suspect]
     Active Substance: TERBINAFINE HYDROCHLORIDE
     Indication: BODY TINEA
     Dosage: UNK UNK, BID

REACTIONS (2)
  - Incorrect product administration duration [Unknown]
  - Skin discolouration [Unknown]
